FAERS Safety Report 26168324 (Version 1)
Quarter: 2025Q4

REPORT INFORMATION
  Report Type: Spontaneous
  Country: EU (occurrence: EU)
  Receive Date: 20251217
  Receipt Date: 20251217
  Transmission Date: 20260118
  Serious: Yes (Hospitalization, Other)
  Sender: RANBAXY
  Company Number: EU-AFSSAPS-MA2025000876

PATIENT
  Age: 10 Year
  Sex: Female

DRUGS (2)
  1. CIPROFLOXACIN [Suspect]
     Active Substance: CIPROFLOXACIN
     Indication: Otitis externa
     Dosage: 500 MILLIGRAM, BID
     Route: 048
     Dates: start: 20250627, end: 20250701
  2. OFLOXACIN [Concomitant]
     Active Substance: OFLOXACIN
     Indication: Otitis externa
     Dosage: UNK
     Route: 001
     Dates: start: 20250627

REACTIONS (5)
  - Dysphoria [Recovering/Resolving]
  - Sleep terror [Recovering/Resolving]
  - Depressed level of consciousness [Recovering/Resolving]
  - Confusional state [Recovering/Resolving]
  - Disorientation [Recovering/Resolving]

NARRATIVE: CASE EVENT DATE: 20250628
